FAERS Safety Report 11577406 (Version 1)
Quarter: 2015Q3

REPORT INFORMATION
  Report Type: Spontaneous
  Country: US (occurrence: US)
  Receive Date: 20150930
  Receipt Date: 20150930
  Transmission Date: 20151125
  Serious: No
  Sender: FDA-Public Use
  Company Number: US-DRREDDYS-USA/USA/14/0043901

PATIENT
  Age: 38 Year
  Sex: Male
  Weight: 80.73 kg

DRUGS (2)
  1. AMOXICILLIN W/C AVULANATE POTASSIUM 500 MG TABLETS [Suspect]
     Active Substance: AMOXICILLIN\CLAVULANATE POTASSIUM
     Indication: SINUSITIS
     Route: 048
     Dates: start: 20141017, end: 20141021
  2. DESLORATADINE. [Concomitant]
     Active Substance: DESLORATADINE
     Indication: PRODUCT USED FOR UNKNOWN INDICATION
     Route: 065
     Dates: start: 20141022

REACTIONS (7)
  - Anxiety [Recovering/Resolving]
  - Dizziness [Recovering/Resolving]
  - Nervousness [Unknown]
  - Hyperhidrosis [Unknown]
  - Diarrhoea [Recovering/Resolving]
  - Palpitations [Unknown]
  - Vertigo [Recovered/Resolved]

NARRATIVE: CASE EVENT DATE: 20141017
